FAERS Safety Report 18156361 (Version 1)
Quarter: 2020Q3

REPORT INFORMATION
  Report Type: Spontaneous
  Country: US (occurrence: US)
  Receive Date: 20200817
  Receipt Date: 20200817
  Transmission Date: 20201103
  Serious: No
  Sender: FDA-Public Use
  Company Number: US-JNJFOC-20200807124

PATIENT
  Age: 8 Decade
  Sex: Female
  Weight: 81.72 kg

DRUGS (1)
  1. WOMENS ROGAINE UNSCENTED [Suspect]
     Active Substance: MINOXIDIL
     Indication: ALOPECIA
     Dosage: DOSE: 1 PUMP ONCE A DAY?PRODUCT LAST ADMINISTERED ON JUL?2020
     Route: 061
     Dates: start: 20190905

REACTIONS (2)
  - Incorrect dose administered [Unknown]
  - Application site hypersensitivity [Recovered/Resolved]

NARRATIVE: CASE EVENT DATE: 20190905
